FAERS Safety Report 10202399 (Version 2)
Quarter: 2014Q4

REPORT INFORMATION
  Report Type: Spontaneous
  Country: FR (occurrence: FR)
  Receive Date: 20140528
  Receipt Date: 20141222
  Transmission Date: 20150528
  Serious: Yes (Hospitalization)
  Sender: FDA-Public Use
  Company Number: FR-SA-2014SA063383

PATIENT
  Age: 60 Year
  Sex: Male

DRUGS (26)
  1. ATENOLOL. [Concomitant]
     Active Substance: ATENOLOL
  2. MAG 2 [Concomitant]
     Active Substance: MAGNESIUM CHLORIDE
  3. LYRICA [Concomitant]
     Active Substance: PREGABALIN
  4. TRIATEC [Concomitant]
     Active Substance: RAMIPRIL
  5. ALPRAZOLAM. [Concomitant]
     Active Substance: ALPRAZOLAM
     Dosage: IF NEEDED THREE TIMES DAILY
  6. CARBOPLATIN. [Suspect]
     Active Substance: CARBOPLATIN
     Indication: PRODUCT USED FOR UNKNOWN INDICATION
     Dosage: DOSE: 330 MG PER COURSE
     Route: 065
     Dates: start: 201402
  7. TRUSOPT [Concomitant]
     Active Substance: DORZOLAMIDE HYDROCHLORIDE
     Dosage: DROPS
  8. CELLCEPT [Suspect]
     Active Substance: MYCOPHENOLATE MOFETIL\MYCOPHENOLATE MOFETIL HYDROCHLORIDE
     Indication: PRODUCT USED FOR UNKNOWN INDICATION
     Route: 065
     Dates: end: 201402
  9. VITAMIN C [Concomitant]
     Active Substance: ASCORBIC ACID
  10. EMEND [Suspect]
     Active Substance: APREPITANT
     Indication: PRODUCT USED FOR UNKNOWN INDICATION
     Route: 065
     Dates: start: 201402
  11. ZARZIO [Concomitant]
     Active Substance: FILGRASTIM
     Dates: start: 20130227, end: 20140303
  12. SPECIAFOLDINE [Concomitant]
     Active Substance: FOLIC ACID
  13. ALDACTONE [Concomitant]
     Active Substance: SPIRONOLACTONE
  14. TAXOTERE [Suspect]
     Active Substance: DOCETAXEL
     Indication: PRODUCT USED FOR UNKNOWN INDICATION
     Dosage: DOSE: 110 MG PER COURSE
     Route: 065
     Dates: start: 201402
  15. SOLUPRED [Suspect]
     Active Substance: PREDNISOLONE
     Indication: PRODUCT USED FOR UNKNOWN INDICATION
     Route: 065
  16. SOLUPRED [Suspect]
     Active Substance: PREDNISOLONE
     Indication: PRODUCT USED FOR UNKNOWN INDICATION
     Route: 065
  17. 5-FU [Suspect]
     Active Substance: FLUOROURACIL
     Indication: PRODUCT USED FOR UNKNOWN INDICATION
     Dosage: DOSE: 1075 MG DAY1 TO DAY5.
     Route: 065
     Dates: start: 201402
  18. METHYLPREDNISOLONE. [Suspect]
     Active Substance: METHYLPREDNISOLONE
     Indication: PRODUCT USED FOR UNKNOWN INDICATION
     Route: 065
     Dates: start: 201402
  19. DOLIPRANE [Concomitant]
     Active Substance: ACETAMINOPHEN
     Dosage: IF NEEDED 4 TABLETS DAILY
  20. HYPERIUM [Concomitant]
     Active Substance: RILMENIDINE PHOSPHATE
  21. HYPERIUM [Concomitant]
     Active Substance: RILMENIDINE PHOSPHATE
     Dosage: DOSE REDUCED
  22. ZOPHREN [Suspect]
     Active Substance: ONDANSETRON
     Indication: PRODUCT USED FOR UNKNOWN INDICATION
     Route: 065
     Dates: start: 201402
  23. MOPRAL [Concomitant]
     Active Substance: OMEPRAZOLE SODIUM
  24. AMLODIPINE [Concomitant]
     Active Substance: AMLODIPINE BESYLATE
  25. COMBIGAN [Concomitant]
     Active Substance: BRIMONIDINE TARTRATE\TIMOLOL MALEATE
     Dosage: DROPS
  26. IMOVANE [Concomitant]
     Active Substance: ZOPICLONE

REACTIONS (6)
  - Atrial fibrillation [Recovered/Resolved]
  - Diarrhoea [Recovered/Resolved]
  - Febrile neutropenia [Recovered/Resolved]
  - Lymphopenia [Unknown]
  - Hypokalaemia [Recovered/Resolved]
  - Thrombocytopenia [Recovered/Resolved]

NARRATIVE: CASE EVENT DATE: 201403
